FAERS Safety Report 19749513 (Version 1)
Quarter: 2021Q3

REPORT INFORMATION
  Report Type: Spontaneous
  Country: US (occurrence: US)
  Receive Date: 20210826
  Receipt Date: 20210826
  Transmission Date: 20211014
  Serious: No
  Sender: FDA-Public Use
  Company Number: US-SA-2021SA280853

PATIENT
  Sex: Female

DRUGS (1)
  1. LOVENOX [Suspect]
     Active Substance: ENOXAPARIN SODIUM
     Indication: THROMBOLYSIS
     Dosage: 40 MG, QD
     Route: 065

REACTIONS (2)
  - Maternal exposure during pregnancy [Unknown]
  - Abdominal discomfort [Unknown]
